FAERS Safety Report 13910233 (Version 1)
Quarter: 2017Q3

REPORT INFORMATION
  Report Type: Spontaneous
  Country: US (occurrence: None)
  Receive Date: 20170822
  Receipt Date: 20170822
  Transmission Date: 20171127
  Serious: No
  Sender: FDA-Public Use
  Company Number: None

PATIENT
  Age: 76 Year
  Sex: Female
  Weight: 55.34 kg

DRUGS (14)
  1. AZELASTINE [Concomitant]
     Active Substance: AZELASTINE
  2. CALCIUM [Concomitant]
     Active Substance: CALCIUM
  3. BIOTIN [Concomitant]
     Active Substance: BIOTIN
  4. SYSTANE BALANCE [Concomitant]
     Active Substance: PROPYLENE GLYCOL
  5. MELATONIN [Concomitant]
     Active Substance: MELATONIN
  6. DONEPEZIL. [Suspect]
     Active Substance: DONEPEZIL
     Indication: AMNESIA
     Dosage: 30 ?ONE HALF BEDTIME MOUTH
     Route: 048
     Dates: start: 20170719, end: 20170802
  7. VITAMIN B12 [Concomitant]
     Active Substance: CYANOCOBALAMIN
  8. FLUTICASONE. [Concomitant]
     Active Substance: FLUTICASONE
  9. ESTRACE [Concomitant]
     Active Substance: ESTRADIOL
  10. B2 [Concomitant]
  11. FEXOFENADINE [Concomitant]
     Active Substance: FEXOFENADINE\FEXOFENADINE HYDROCHLORIDE
  12. SUMATRIPTAN. [Concomitant]
     Active Substance: SUMATRIPTAN
  13. CLONAZEPAM. [Concomitant]
     Active Substance: CLONAZEPAM
  14. TEMAZEPAM. [Concomitant]
     Active Substance: TEMAZEPAM

REACTIONS (9)
  - Insomnia [None]
  - Muscle spasms [None]
  - Weight decreased [None]
  - Tremor [None]
  - Pharyngeal oedema [None]
  - Diarrhoea [None]
  - Decreased appetite [None]
  - Crying [None]
  - Flatulence [None]

NARRATIVE: CASE EVENT DATE: 20170802
